FAERS Safety Report 10297045 (Version 2)
Quarter: 2014Q3

REPORT INFORMATION
  Report Type: Spontaneous
  Country: US (occurrence: US)
  Receive Date: 20140711
  Receipt Date: 20140730
  Transmission Date: 20150326
  Serious: Yes (Hospitalization)
  Sender: FDA-Public Use
  Company Number: US-ROCHE-1432572

PATIENT
  Age: 64 Year
  Sex: Female

DRUGS (9)
  1. CLONAZEPAM. [Concomitant]
     Active Substance: CLONAZEPAM
     Route: 065
  2. NEURONTIN (UNITED STATES) [Concomitant]
     Indication: TRIGEMINAL NEURALGIA
     Route: 048
  3. ATARAX [Concomitant]
     Active Substance: HYDROXYZINE\HYDROXYZINE HYDROCHLORIDE
     Indication: HYPERTENSION
     Route: 048
  4. SKELAXIN [Concomitant]
     Active Substance: METAXALONE
     Indication: MYALGIA
     Route: 048
  5. KLONOPIN [Suspect]
     Active Substance: CLONAZEPAM
     Indication: TRIGEMINAL NEURALGIA
     Route: 048
     Dates: start: 20111004
  6. KLONOPIN [Suspect]
     Active Substance: CLONAZEPAM
     Indication: FACIAL SPASM
  7. PROTRIPTYLINE [Concomitant]
     Active Substance: PROTRIPTYLINE
     Indication: TRIGEMINAL NEURALGIA
     Route: 048
  8. NORVASC [Concomitant]
     Active Substance: AMLODIPINE BESYLATE
     Indication: HYPERTENSION
     Route: 048
  9. TOPROL XL [Concomitant]
     Active Substance: METOPROLOL SUCCINATE
     Indication: HYPERTENSION
     Route: 048

REACTIONS (6)
  - Panic reaction [Recovered/Resolved]
  - Head discomfort [Unknown]
  - Gout [Recovered/Resolved]
  - Coronary arterial stent insertion [Recovered/Resolved]
  - Nervousness [Unknown]
  - Diverticulitis [Recovered/Resolved]

NARRATIVE: CASE EVENT DATE: 2012
